FAERS Safety Report 6461612-7 (Version None)
Quarter: 2009Q4

REPORT INFORMATION
  Report Type: 
  Country: None (occurrence: None)
  Receive Date: 20091130
  Receipt Date: 20091124
  Transmission Date: 20100525
  Serious: Yes (Other)
  Sender: FDA-Public Use
  Company Number: FR-BRISTOL-MYERS SQUIBB COMPANY-14871206

PATIENT
  Age: 76 Year
  Sex: Female

DRUGS (2)
  1. ELISOR [Suspect]
     Indication: HYPERCHOLESTEROLAEMIA
     Route: 065
  2. XAGRID [Suspect]
     Indication: ESSENTIAL THROMBOCYTHAEMIA
     Dosage: 2006-28OCT09:3MG 29OCT09-ONG:2.5MG (DOSE REDUCED) CAPS
     Route: 048
     Dates: start: 20060101

REACTIONS (3)
  - HYPERTENSION [None]
  - PERIPHERAL SENSORIMOTOR NEUROPATHY [None]
  - RENAL FAILURE [None]
